FAERS Safety Report 12884659 (Version 1)
Quarter: 2016Q4

REPORT INFORMATION
  Report Type: Spontaneous
  Country: US (occurrence: US)
  Receive Date: 20161025
  Receipt Date: 20161025
  Transmission Date: 20170207
  Serious: No
  Sender: FDA-Public Use
  Company Number: None

PATIENT
  Age: 43 Year
  Sex: Female
  Weight: 85.5 kg

DRUGS (2)
  1. CHORIONIC GONADOTROPIN/LYOPHILIZ WELLS PHARMACY NETWORK [Suspect]
     Active Substance: GONADOTROPHIN, CHORIONIC
     Indication: WEIGHT DECREASED
     Dosage: ?          OTHER STRENGTH:UNITS;?
     Route: 058
     Dates: start: 20160701, end: 20160731
  2. CHORIONIC GONADOTROPIN/LYOPHILIZ WELLS PHARMACY NETWORK [Suspect]
     Active Substance: GONADOTROPHIN, CHORIONIC
     Indication: THYROID DISORDER
     Dosage: ?          OTHER STRENGTH:UNITS;?
     Route: 058
     Dates: start: 20160701, end: 20160731

REACTIONS (2)
  - Rash [None]
  - Weight increased [None]

NARRATIVE: CASE EVENT DATE: 20160726
